FAERS Safety Report 5495254-7 (Version None)
Quarter: 2007Q4

REPORT INFORMATION
  Report Type: 
  Country: None (occurrence: None)
  Receive Date: 20071024
  Receipt Date: 20071012
  Transmission Date: 20080405
  Serious: Yes (Other)
  Sender: FDA-Public Use
  Company Number: US-PFIZER INC-2007061287

PATIENT
  Sex: Female
  Weight: 56.7 kg

DRUGS (6)
  1. CHANTIX [Suspect]
     Indication: SMOKING CESSATION THERAPY
     Route: 048
     Dates: start: 20070710, end: 20070714
  2. CHANTIX [Suspect]
     Indication: NICOTINE DEPENDENCE
  3. LEXAPRO [Concomitant]
  4. SEROQUEL [Concomitant]
  5. ALPRAZOLAM [Concomitant]
  6. VICOPROFEN [Concomitant]

REACTIONS (2)
  - TONGUE DISORDER [None]
  - TONGUE OEDEMA [None]
